FAERS Safety Report 4685675-4 (Version None)
Quarter: 2005Q2

REPORT INFORMATION
  Report Type: 
  Country: None (occurrence: None)
  Receive Date: 20050608
  Receipt Date: 20050525
  Transmission Date: 20051028
  Serious: Yes (Life-Threatening, Hospitalization)
  Sender: FDA-Public Use
  Company Number: RENA-11389

PATIENT
  Age: 70 Year
  Sex: Male

DRUGS (4)
  1. PHOSBLOCK - 250 MG TABLET [Suspect]
     Indication: HYPERPHOSPHATAEMIA
     Dosage: 0.75 G DAILY PO
     Route: 048
     Dates: start: 20030701
  2. PHOSBLOCK - 250 MG TABLET [Suspect]
     Indication: HYPERPHOSPHATAEMIA
     Dosage: 3 G DAILY PO
     Route: 048
     Dates: end: 20050508
  3. STEROID THERAPY NOS [Suspect]
     Indication: ASTHMA
     Dates: start: 20041201
  4. STEROID THERAPY NOS [Suspect]
     Indication: ASTHMA

REACTIONS (4)
  - CONSTIPATION [None]
  - DIVERTICULAR PERFORATION [None]
  - DIVERTICULUM INTESTINAL [None]
  - LARGE INTESTINE PERFORATION [None]
